FAERS Safety Report 4657769-0 (Version None)
Quarter: 2005Q2

REPORT INFORMATION
  Report Type: 
  Country: None (occurrence: None)
  Receive Date: 20050510
  Receipt Date: 20050429
  Transmission Date: 20051028
  Serious: Yes (Disabling)
  Sender: FDA-Public Use
  Company Number: US-GLAXOSMITHKLINE-A0556431A

PATIENT
  Age: 33 Year
  Sex: Female
  Weight: 109 kg

DRUGS (13)
  1. AQUAFRESH TOOTHPASTE [Suspect]
     Indication: DENTAL CLEANING
     Dates: start: 19800101
  2. AQUAFRESH WHITENING MULTI-ACTION TOOTHPASTE TUBE [Suspect]
     Indication: DENTAL CLEANING
     Dates: start: 20050425
  3. SYNTHROID [Concomitant]
     Indication: THYROIDITIS
  4. MIACALCIN [Concomitant]
     Indication: OSTEOPOROSIS
     Route: 055
  5. CYTOMEL [Concomitant]
     Indication: THYROIDITIS
     Route: 048
  6. LEVOTHROID [Concomitant]
     Indication: THYROIDITIS
     Route: 048
  7. TRICOR [Concomitant]
     Indication: BLOOD CHOLESTEROL
     Route: 048
  8. PAXIL [Concomitant]
     Indication: DEPRESSION
     Route: 048
  9. TRAZODONE [Concomitant]
     Indication: DEPRESSION
     Route: 048
  10. CITRACAL [Concomitant]
     Indication: BLOOD CALCIUM
     Route: 048
  11. CLIMARA [Concomitant]
     Indication: OESTROGEN REPLACEMENT THERAPY
     Route: 048
  12. EYEDROPS [Concomitant]
     Indication: DRY EYE
  13. LISINOPRIL [Concomitant]

REACTIONS (13)
  - AUTOIMMUNE DISORDER [None]
  - CEREBROVASCULAR ACCIDENT [None]
  - CONTUSION [None]
  - CONVULSION [None]
  - DIABETES MELLITUS [None]
  - GRAND MAL CONVULSION [None]
  - INTERVERTEBRAL DISC DEGENERATION [None]
  - JOINT SWELLING [None]
  - LOSS OF CONSCIOUSNESS [None]
  - ORAL MUCOSAL EXFOLIATION [None]
  - ORAL PAIN [None]
  - OSTEOARTHRITIS [None]
  - SYSTEMIC LUPUS ERYTHEMATOSUS [None]
